FAERS Safety Report 6129341-7 (Version None)
Quarter: 2009Q1

REPORT INFORMATION
  Report Type: 
  Country: None (occurrence: None)
  Receive Date: 20090323
  Receipt Date: 20090323
  Transmission Date: 20090719
  Serious: Yes (Other)
  Sender: FDA-Public Use
  Company Number: None

PATIENT
  Age: 83 Year
  Sex: Male
  Weight: 81.6475 kg

DRUGS (2)
  1. LEVAQUIN [Suspect]
     Indication: BLADDER DISORDER
     Dosage: 1 CAPSULE 1/DAY PO
     Route: 048
     Dates: start: 20090303, end: 20090306
  2. LEVAQUIN [Suspect]
     Indication: PROSTATE INFECTION
     Dosage: 1 CAPSULE 1/DAY PO
     Route: 048
     Dates: start: 20090303, end: 20090306

REACTIONS (4)
  - GAIT DISTURBANCE [None]
  - PARAESTHESIA [None]
  - TENDON PAIN [None]
  - WALKING AID USER [None]
